FAERS Safety Report 14452467 (Version 1)
Quarter: 2018Q1

REPORT INFORMATION
  Report Type: Spontaneous
  Country: US (occurrence: US)
  Receive Date: 20180126
  Receipt Date: 20180126
  Transmission Date: 20180509
  Serious: No
  Sender: FDA-Public Use
  Company Number: None

PATIENT
  Age: 65 Year
  Sex: Female

DRUGS (1)
  1. CAPECITABINE. [Suspect]
     Active Substance: CAPECITABINE
     Route: 048

REACTIONS (5)
  - White blood cell count decreased [None]
  - Erythema [None]
  - Headache [None]
  - Bone pain [None]
  - Diarrhoea [None]

NARRATIVE: CASE EVENT DATE: 20180124
